FAERS Safety Report 7130869-1 (Version None)
Quarter: 2010Q4

REPORT INFORMATION
  Report Type: 
  Country: None (occurrence: None)
  Receive Date: 20101201
  Receipt Date: 20101126
  Transmission Date: 20110411
  Serious: Yes (Other)
  Sender: FDA-Public Use
  Company Number: BR-ROCHE-744762

PATIENT
  Sex: Female
  Weight: 61 kg

DRUGS (5)
  1. TOCILIZUMAB [Suspect]
     Indication: RHEUMATOID ARTHRITIS
     Dosage: FORM: INFUSION
     Route: 042
     Dates: start: 20100903, end: 20101004
  2. PRELONE [Concomitant]
     Dosage: STARTED A LONG TIME AGO
  3. METHOTREXATE [Concomitant]
     Dosage: STARTED A LONG TIME AGO
  4. FOLIC ACID [Concomitant]
     Dosage: STARTED A LONG TIME AGO
  5. OMEPRAZOLE [Concomitant]
     Dosage: STARTED A LONG TIME AGO

REACTIONS (6)
  - ANAEMIA [None]
  - ARTHRALGIA [None]
  - DIZZINESS [None]
  - KIDNEY INFECTION [None]
  - NAUSEA [None]
  - THERAPEUTIC RESPONSE DECREASED [None]
